FAERS Safety Report 23845864 (Version 1)
Quarter: 2024Q2

REPORT INFORMATION
  Report Type: Spontaneous
  Country: US (occurrence: US)
  Receive Date: 20240512
  Receipt Date: 20240512
  Transmission Date: 20240716
  Serious: No
  Sender: FDA-Public Use
  Company Number: US-CIPLA LTD.-2023US05613

PATIENT

DRUGS (3)
  1. ALBUTEROL [Suspect]
     Active Substance: ALBUTEROL
     Indication: Asthma exercise induced
     Dosage: 2 PUFFS (180 MICROGRAM), AS NEEDED
     Dates: start: 20230911
  2. ALBUTEROL [Suspect]
     Active Substance: ALBUTEROL
     Indication: Asthma
     Dosage: 3 PUFFS (270 MICROGRAM), AS NEEDED
     Dates: start: 20230911
  3. ALBUTEROL [Suspect]
     Active Substance: ALBUTEROL
     Dosage: UNK
     Route: 065
     Dates: start: 2023

REACTIONS (5)
  - Dyspnoea [Unknown]
  - Wheezing [Unknown]
  - Device delivery system issue [Unknown]
  - Device malfunction [Unknown]
  - Intentional product use issue [Unknown]

NARRATIVE: CASE EVENT DATE: 20230911
